FAERS Safety Report 7722433-8 (Version None)
Quarter: 2011Q3

REPORT INFORMATION
  Report Type: 
  Country: None (occurrence: None)
  Receive Date: 20110831
  Receipt Date: 20110825
  Transmission Date: 20111222
  Serious: Yes (Hospitalization, Other)
  Sender: FDA-Public Use
  Company Number: US-PFIZER INC-2011197044

PATIENT
  Sex: Female

DRUGS (5)
  1. EFFEXOR XR [Suspect]
     Dosage: 300 MG, 1X/DAY
     Route: 048
     Dates: end: 20101017
  2. EFFEXOR XR [Suspect]
     Indication: DEPRESSION
     Dosage: 75 MG, 1X/DAY
     Route: 048
     Dates: start: 20030101
  3. VENLAFAXINE HCL [Suspect]
     Indication: DEPRESSION
     Dosage: 300 MG, 1X/DAY
     Route: 048
     Dates: start: 20101018, end: 20101231
  4. LEXAPRO [Concomitant]
     Indication: DEPRESSION
     Dosage: 40 MG, 1X/DAY
  5. EFFEXOR XR [Suspect]
     Dosage: 300 MG, 1X/DAY
     Route: 048
     Dates: start: 20110101

REACTIONS (7)
  - SUICIDE ATTEMPT [None]
  - HAEMOGLOBIN DECREASED [None]
  - TEARFULNESS [None]
  - FATIGUE [None]
  - ANXIETY [None]
  - DEPRESSION [None]
  - ANAEMIA [None]
